FAERS Safety Report 5702155-5 (Version None)
Quarter: 2008Q2

REPORT INFORMATION
  Report Type: 
  Country: None (occurrence: None)
  Receive Date: 20080411
  Receipt Date: 20080403
  Transmission Date: 20081010
  Serious: Yes (Hospitalization)
  Sender: FDA-Public Use
  Company Number: PHRM2008FR01206

PATIENT
  Age: 72 Year
  Sex: Male

DRUGS (7)
  1. LESCOL [Suspect]
     Dosage: 80 MG, QD
     Route: 048
     Dates: start: 20060101, end: 20071225
  2. CELECTOL [Suspect]
     Dosage: 200 MG, QD
     Route: 048
     Dates: start: 20050101, end: 20080102
  3. ZANIDIP [Concomitant]
     Route: 048
     Dates: start: 20060101
  4. PLAVIX [Concomitant]
     Route: 048
     Dates: start: 20040101
  5. ALLOPURINOL [Concomitant]
     Route: 048
     Dates: start: 20050101
  6. COKENZEN [Concomitant]
     Dosage: UNK, UNK
     Route: 048
     Dates: end: 20071218
  7. LASILIX [Concomitant]
     Route: 048

REACTIONS (16)
  - ANTINEUTROPHIL CYTOPLASMIC ANTIBODY POSITIVE [None]
  - BRONCHOALVEOLAR LAVAGE ABNORMAL [None]
  - CHEST PAIN [None]
  - CHEST X-RAY ABNORMAL [None]
  - COUGH [None]
  - DYSPNOEA [None]
  - GENERAL PHYSICAL HEALTH DETERIORATION [None]
  - GLOMERULAR FILTRATION RATE DECREASED [None]
  - INTERSTITIAL LUNG DISEASE [None]
  - LUNG INFILTRATION [None]
  - OXYGEN SUPPLEMENTATION [None]
  - PLEURAL EFFUSION [None]
  - PULMONARY FIBROSIS [None]
  - RESPIRATORY FAILURE [None]
  - TOTAL LUNG CAPACITY DECREASED [None]
  - WEIGHT DECREASED [None]
